FAERS Safety Report 19110981 (Version 2)
Quarter: 2021Q2

REPORT INFORMATION
  Report Type: Spontaneous
  Country: CN (occurrence: CN)
  Receive Date: 20210408
  Receipt Date: 20210423
  Transmission Date: 20210717
  Serious: Yes (Other)
  Sender: FDA-Public Use
  Company Number: CN-PFIZER INC-2021334983

PATIENT
  Age: 60 Year
  Sex: Female

DRUGS (5)
  1. LAPATINIB [Concomitant]
     Active Substance: LAPATINIB
     Indication: BREAST CANCER STAGE III
  2. LAPATINIB [Concomitant]
     Active Substance: LAPATINIB
     Indication: METASTASES TO BONE
  3. LAPATINIB [Concomitant]
     Active Substance: LAPATINIB
     Indication: METASTASES TO LUNG
     Dosage: 0.25 G, 1X/DAY
     Route: 048
     Dates: start: 2016
  4. EPIRUBICIN HCL [Suspect]
     Active Substance: EPIRUBICIN HYDROCHLORIDE
     Indication: BREAST CANCER METASTATIC
     Dosage: 80 MG/M2, CYCLIC (DAY 1 EVERY 21 DAYS)
     Route: 042
     Dates: start: 2016, end: 2016
  5. LAPATINIB [Concomitant]
     Active Substance: LAPATINIB
     Indication: METASTASES TO LIVER

REACTIONS (1)
  - Hepatic function abnormal [Recovering/Resolving]

NARRATIVE: CASE EVENT DATE: 2016
